FAERS Safety Report 17538199 (Version 1)
Quarter: 2020Q1

REPORT INFORMATION
  Report Type: Spontaneous
  Country: GB (occurrence: GB)
  Receive Date: 20200313
  Receipt Date: 20200313
  Transmission Date: 20200409
  Serious: Yes (Hospitalization)
  Sender: FDA-Public Use
  Company Number: GB-JNJFOC-20200309816

PATIENT
  Age: 86 Year
  Sex: Male

DRUGS (15)
  1. ROSUVASTATIN. [Concomitant]
     Active Substance: ROSUVASTATIN
     Dosage: 20 MG, QD, AT NIGHT
     Route: 048
     Dates: start: 20191210
  2. TIOTROPIUM [Concomitant]
     Active Substance: TIOTROPIUM
     Dosage: 2 DF, QD, 2 PUFFS QD
     Route: 055
     Dates: start: 20191203
  3. FOSTAIR [Concomitant]
     Active Substance: BECLOMETHASONE\FORMOTEROL
     Dosage: 4 DF, QD, UPTO 4 PUFFS IN BETWEEN
     Route: 055
     Dates: start: 20190906
  4. MONTELUKAST [Concomitant]
     Active Substance: MONTELUKAST SODIUM
     Dosage: 10 MG, QD, AT NIGHT
     Route: 048
     Dates: start: 20191203
  5. UNIPHYLLIN CONTINUS [Concomitant]
     Active Substance: THEOPHYLLINE ANHYDROUS
     Dosage: 400 MG, QD
     Route: 048
     Dates: start: 20191203
  6. SALBUTAMOL [Concomitant]
     Active Substance: ALBUTEROL
     Dosage: 1-2 PUFFS AS NEEDED
     Route: 055
     Dates: start: 20191203
  7. FUROSEMIDE. [Concomitant]
     Active Substance: FUROSEMIDE
     Dosage: 20 MG, QD, IN MORNING
     Route: 048
     Dates: start: 20191203
  8. CARBOMER [Concomitant]
     Active Substance: CARBOMER
     Dosage: 3 DF, QD, BOTH EYES
     Dates: start: 20191203
  9. AZELASTINE. [Concomitant]
     Active Substance: AZELASTINE HYDROCHLORIDE
     Dosage: 4 DF, QD
     Route: 045
     Dates: start: 20191204
  10. CICLESONIDE [Concomitant]
     Active Substance: CICLESONIDE
     Dosage: 320 UG, QD, 2 PUFFS BD
     Route: 050
     Dates: start: 20191203
  11. OMEPRAZOLE. [Concomitant]
     Active Substance: OMEPRAZOLE
     Dosage: 40 MG, QD
     Dates: start: 20191217
  12. RIVAROXABAN [Suspect]
     Active Substance: RIVAROXABAN
     Indication: ATRIAL FIBRILLATION
     Dosage: 15 MG, QD (MORNING)
     Route: 048
     Dates: start: 20191203, end: 20191230
  13. FLUTICASONE. [Concomitant]
     Active Substance: FLUTICASONE
     Dosage: 4 DF, QD
     Route: 045
     Dates: start: 20191204
  14. MOMETASONE [Concomitant]
     Active Substance: MOMETASONE
     Dosage: 2 DF
     Route: 045
     Dates: start: 20190906
  15. SENNA ALEXANDRINA [Concomitant]
     Active Substance: SENNA LEAF
     Dosage: 15 MG, QD, AT NIGHT
     Route: 048
     Dates: start: 20191204

REACTIONS (11)
  - Decreased appetite [Unknown]
  - Faeces discoloured [Recovering/Resolving]
  - Dyspnoea [Recovering/Resolving]
  - Abdominal discomfort [Not Recovered/Not Resolved]
  - Dizziness [Recovering/Resolving]
  - Upper gastrointestinal haemorrhage [Recovering/Resolving]
  - Nausea [Unknown]
  - Melaena [Recovering/Resolving]
  - Diarrhoea [Recovering/Resolving]
  - Haematemesis [Unknown]
  - Abnormal loss of weight [Unknown]

NARRATIVE: CASE EVENT DATE: 20191230
